FAERS Safety Report 5486118-3 (Version None)
Quarter: 2007Q4

REPORT INFORMATION
  Report Type: 
  Country: None (occurrence: None)
  Receive Date: 20071015
  Receipt Date: 20070821
  Transmission Date: 20080405
  Serious: Yes (Other)
  Sender: FDA-Public Use
  Company Number: GB-PFIZER INC-2007070875

PATIENT
  Age: 67 Year
  Sex: Male
  Weight: 68 kg

DRUGS (5)
  1. CHAMPIX [Suspect]
     Indication: SMOKING CESSATION THERAPY
     Route: 048
     Dates: start: 20070105, end: 20070113
  2. ADALAT CC [Concomitant]
     Indication: HYPERTENSION
     Dosage: TEXT:30 MG
     Route: 048
     Dates: start: 20061219
  3. BECLOMETHASONE DIPROPIONATE [Concomitant]
     Indication: ASTHMA
  4. BENDROFLUMETHIAZIDE [Concomitant]
     Indication: HYPERTENSION
  5. FLUCLOXACILLIN [Concomitant]
     Indication: RESPIRATORY DISORDER

REACTIONS (3)
  - CHEST DISCOMFORT [None]
  - EYE PAIN [None]
  - WHEEZING [None]
